FAERS Safety Report 6484632-5 (Version None)
Quarter: 2009Q4

REPORT INFORMATION
  Report Type: 
  Country: None (occurrence: None)
  Receive Date: 20091209
  Receipt Date: 20091201
  Transmission Date: 20100525
  Serious: Yes (Other)
  Sender: FDA-Public Use
  Company Number: NZ-ABBOTT-09P-009-0611520-00

PATIENT
  Sex: Female

DRUGS (2)
  1. HUMIRA [Suspect]
     Indication: RHEUMATOID ARTHRITIS
     Dosage: 3 INJECTIONS
  2. PREDNISONE [Suspect]
     Indication: RHEUMATOID ARTHRITIS

REACTIONS (9)
  - ABDOMINAL PAIN [None]
  - ABSCESS [None]
  - BLINDNESS UNILATERAL [None]
  - CATARACT [None]
  - DIARRHOEA [None]
  - FACE OEDEMA [None]
  - NAUSEA [None]
  - PAIN IN JAW [None]
  - SENSITIVITY OF TEETH [None]
